FAERS Safety Report 15819621 (Version 3)
Quarter: 2019Q1

REPORT INFORMATION
  Report Type: Spontaneous
  Country: DE (occurrence: DE)
  Receive Date: 20190114
  Receipt Date: 20190306
  Transmission Date: 20190417
  Serious: Yes (Disabling, Other)
  Sender: FDA-Public Use
  Company Number: DE-ROCHE-2243583

PATIENT
  Age: 60 Year
  Sex: Female

DRUGS (5)
  1. EXEMESTANE. [Concomitant]
     Active Substance: EXEMESTANE
  2. HERCEPTIN [Suspect]
     Active Substance: TRASTUZUMAB
     Indication: PRODUCT USED FOR UNKNOWN INDICATION
     Route: 065
  3. GRANISETRON [Concomitant]
     Active Substance: GRANISETRON
     Route: 042
  4. KADCYLA [Suspect]
     Active Substance: ADO-TRASTUZUMAB EMTANSINE
     Indication: PRODUCT USED FOR UNKNOWN INDICATION
     Route: 065
  5. IBANDRONIC ACID. [Concomitant]
     Active Substance: IBANDRONIC ACID
     Indication: METASTASES TO BONE
     Route: 042

REACTIONS (5)
  - Myelitis [Unknown]
  - Femur fracture [Unknown]
  - Fall [Unknown]
  - Monoparesis [Recovering/Resolving]
  - Polyneuropathy [Unknown]

NARRATIVE: CASE EVENT DATE: 201606
